FAERS Safety Report 7778849 (Version 3)
Quarter: 2012Q4

REPORT INFORMATION
  Report Type: 
  Country: US (occurrence: US)
  Receive Date: 20110128
  Receipt Date: 20121221
  Transmission Date: 20130627
  Serious: Yes (Other)
  Sender: FDA-Public Use
  Company Number: US-ASTRAZENECA-2010SE25777

PATIENT
  Age: 79 Year
  Sex: Male

DRUGS (5)
  1. NEXIUM [Suspect]
     Route: 048
  2. TOPROL XL [Suspect]
     Route: 048
  3. SINEMET [Concomitant]
  4. LIPITOR [Concomitant]
  5. COUMADIN [Concomitant]

REACTIONS (5)
  - Cerebrovascular accident [Unknown]
  - Dysphagia [Unknown]
  - Speech disorder [Unknown]
  - Parkinson^s disease [Unknown]
  - Exostosis [Unknown]
